FAERS Safety Report 11282680 (Version 1)
Quarter: 2015Q3

REPORT INFORMATION
  Report Type: Spontaneous
  Country: US (occurrence: None)
  Receive Date: 20150716
  Receipt Date: 20150716
  Transmission Date: 20151125
  Serious: Yes (Disabling, Other)
  Sender: FDA-Public Use
  Company Number: CC400263710

PATIENT
  Age: 11 Year
  Sex: Male

DRUGS (2)
  1. METHYLPREDISOLONE [Concomitant]
     Active Substance: METHYLPREDNISOLONE
  2. LIDOCAINE. [Suspect]
     Active Substance: LIDOCAINE
     Indication: JUVENILE IDIOPATHIC ARTHRITIS
     Route: 014

REACTIONS (1)
  - Embolia cutis medicamentosa [None]
